FAERS Safety Report 8402299-3 (Version None)
Quarter: 2012Q2

REPORT INFORMATION
  Report Type: 
  Country: None (occurrence: None)
  Receive Date: 20120601
  Receipt Date: 20120521
  Transmission Date: 20120825
  Serious: Yes (Hospitalization)
  Sender: FDA-Public Use
  Company Number: AT-BRISTOL-MYERS SQUIBB COMPANY-16612863

PATIENT
  Age: 21 Year
  Sex: Male

DRUGS (3)
  1. CEFOTAXIME [Suspect]
     Route: 042
  2. LINEZOLID [Suspect]
  3. AMPICILLIN [Suspect]
     Route: 042

REACTIONS (4)
  - CANDIDIASIS [None]
  - PANCYTOPENIA [None]
  - HERPES ZOSTER [None]
  - PYREXIA [None]
